FAERS Safety Report 23487614 (Version 1)
Quarter: 2024Q1

REPORT INFORMATION
  Report Type: Spontaneous
  Country: RU (occurrence: None)
  Receive Date: 20240206
  Receipt Date: 20240206
  Transmission Date: 20240410
  Serious: Yes (Other)
  Sender: FDA-Public Use
  Company Number: 2024A028234

PATIENT
  Age: 23 Year
  Sex: Male

DRUGS (4)
  1. BENRALIZUMAB [Suspect]
     Active Substance: BENRALIZUMAB
     Indication: Asthma
     Dosage: 30 MG ONCE IN 4 WEEKS (FIRST THREE INJECTIONS) AND ONCE IN 8 WEEKS THEREAFTER.
     Route: 058
     Dates: start: 202211
  2. BUDESONIDE\FORMOTEROL [Suspect]
     Active Substance: BUDESONIDE\FORMOTEROL
     Indication: Asthma
     Dosage: 160/4.5 ?G - 4 INHALATIONS DAILY
     Route: 055
  3. DUPILUMAB [Concomitant]
     Active Substance: DUPILUMAB
     Route: 058
     Dates: start: 202309
  4. DUPILUMAB [Concomitant]
     Active Substance: DUPILUMAB
     Route: 058
     Dates: start: 20231003

REACTIONS (4)
  - Obstructive airways disorder [Unknown]
  - Dermatitis atopic [Unknown]
  - Blood immunoglobulin E increased [Unknown]
  - Conjunctivitis allergic [Unknown]
